FAERS Safety Report 9308038 (Version 1)
Quarter: 2013Q2

REPORT INFORMATION
  Report Type: Spontaneous
  Country: US (occurrence: US)
  Receive Date: 20130524
  Receipt Date: 20130524
  Transmission Date: 20140414
  Serious: No
  Sender: FDA-Public Use
  Company Number: US-GLAXOSMITHKLINE-A0995619A

PATIENT
  Age: 38 Year
  Sex: Female

DRUGS (2)
  1. BACTROBAN [Suspect]
     Indication: RASH
     Dosage: 2PCT THREE TIMES PER DAY
     Route: 061
     Dates: start: 20120916
  2. NO CONCURRENT MEDICATION [Concomitant]

REACTIONS (6)
  - Nonspecific reaction [Recovered/Resolved]
  - Burning sensation [Unknown]
  - Pruritus [Unknown]
  - Drug ineffective [Unknown]
  - Product quality issue [Unknown]
  - Hypersensitivity [Unknown]
